FAERS Safety Report 19304242 (Version 2)
Quarter: 2021Q3

REPORT INFORMATION
  Report Type: Spontaneous
  Country: US (occurrence: US)
  Receive Date: 20210526
  Receipt Date: 20210702
  Transmission Date: 20211014
  Serious: No
  Sender: FDA-Public Use
  Company Number: US-ASTRAZENECA-2021A413845

PATIENT
  Age: 24287 Day
  Sex: Female

DRUGS (2)
  1. BYDUREON [Suspect]
     Active Substance: EXENATIDE
     Indication: TYPE 2 DIABETES MELLITUS
     Route: 065
  2. BYDUREON BCISE [Suspect]
     Active Substance: EXENATIDE
     Indication: TYPE 2 DIABETES MELLITUS
     Route: 065
     Dates: start: 20210318

REACTIONS (5)
  - Injection site pain [Unknown]
  - Wrong technique in device usage process [Unknown]
  - Injection site haemorrhage [Unknown]
  - Contusion [Unknown]
  - Device leakage [Unknown]

NARRATIVE: CASE EVENT DATE: 20210506
